FAERS Safety Report 7128487-4 (Version None)
Quarter: 2010Q4

REPORT INFORMATION
  Report Type: 
  Country: None (occurrence: None)
  Receive Date: 20101130
  Receipt Date: 20101117
  Transmission Date: 20110411
  Serious: Yes (Hospitalization)
  Sender: FDA-Public Use
  Company Number: DE-ACTELION-A-CH2009-27439

PATIENT
  Sex: Male
  Weight: 36 kg

DRUGS (4)
  1. MIGLUSTAT CAPSULE 100 MG NPC EU [Suspect]
     Indication: NIEMANN-PICK DISEASE
     Dosage: 100 MG, BID
     Route: 048
     Dates: start: 20070101
  2. MIGLUSTAT CAPSULE 100 MG NPC EU [Suspect]
     Dosage: 50 MG, TID
     Route: 048
     Dates: end: 20100909
  3. ERGENYL CHRONO [Concomitant]
  4. PETHIDIN [Concomitant]

REACTIONS (3)
  - DIARRHOEA [None]
  - GASTROSTOMY FAILURE [None]
  - LACTOSE INTOLERANCE [None]
